FAERS Safety Report 10590730 (Version 1)
Quarter: 2014Q4

REPORT INFORMATION
  Report Type: Other
  Country: JP (occurrence: JP)
  Receive Date: 20141118
  Receipt Date: 20141118
  Transmission Date: 20150529
  Serious: Yes (Other)
  Sender: FDA-Public Use
  Company Number: JP-BRISTOL-MYERS SQUIBB COMPANY-21583885

PATIENT
  Age: 66 Year
  Sex: Male

DRUGS (3)
  1. NILOTINIB [Suspect]
     Active Substance: NILOTINIB
     Indication: CHRONIC MYELOID LEUKAEMIA
     Route: 048
     Dates: start: 201309
  2. METGLUCO [Suspect]
     Active Substance: METFORMIN HYDROCHLORIDE
     Indication: TYPE 2 DIABETES MELLITUS
     Route: 048
     Dates: start: 201312
  3. MIGLITOL. [Concomitant]
     Active Substance: MIGLITOL

REACTIONS (7)
  - Weight decreased [Unknown]
  - Hypersomnia [Unknown]
  - Dysphonia [Unknown]
  - Hyperthyroidism [Unknown]
  - Thyroiditis [Unknown]
  - Hypothyroidism [Unknown]
  - Fatigue [Unknown]
